FAERS Safety Report 5518665-X (Version None)
Quarter: 2007Q4

REPORT INFORMATION
  Report Type: 
  Country: None (occurrence: None)
  Receive Date: 20071115
  Receipt Date: 20071108
  Transmission Date: 20080405
  Serious: Yes (Disabling, Other)
  Sender: FDA-Public Use
  Company Number: FR-ASTRAZENECA-2007CG00433

PATIENT
  Age: 842 Month
  Sex: Female
  Weight: 78 kg

DRUGS (6)
  1. CRESTOR [Suspect]
     Route: 048
     Dates: start: 20060501, end: 20060801
  2. NISIS [Concomitant]
     Indication: HYPERTENSION
  3. TEMERIT [Concomitant]
  4. NOVONORM [Concomitant]
  5. ASPEGIC 1000 [Concomitant]
  6. TRIVASTAL [Concomitant]

REACTIONS (3)
  - BLOOD CREATINE PHOSPHOKINASE INCREASED [None]
  - MYALGIA [None]
  - WEIGHT INCREASED [None]
